FAERS Safety Report 11071078 (Version 1)
Quarter: 2015Q2

REPORT INFORMATION
  Report Type: Spontaneous
  Country: US (occurrence: None)
  Receive Date: 20150427
  Receipt Date: 20150427
  Transmission Date: 20150821
  Serious: Yes (Life-Threatening)
  Sender: FDA-Public Use
  Company Number: None

PATIENT
  Age: 40 Year
  Sex: Male
  Weight: 68 kg

DRUGS (9)
  1. PERCOCET [Concomitant]
     Active Substance: ACETAMINOPHEN\OXYCODONE HYDROCHLORIDE
  2. CITALOPRAM [Concomitant]
     Active Substance: CITALOPRAM HYDROBROMIDE
  3. LISINOPRIL. [Concomitant]
     Active Substance: LISINOPRIL
  4. CLONAZEPAM. [Concomitant]
     Active Substance: CLONAZEPAM
  5. BUPROPION [Concomitant]
     Active Substance: BUPROPION
  6. AMPHETAMINE/DEXTRO [Concomitant]
  7. FLUTICASONE [Concomitant]
     Active Substance: FLUTICASONE\FLUTICASONE PROPIONATE
  8. HYDROCHOLOROTHIAZIDE [Concomitant]
  9. CROFAB [Suspect]
     Active Substance: CROTALIDAE POLYVALENT IMMUNE FAB (OVINE)
     Indication: SNAKE BITE
     Dosage: 4 VIALS, ONCE, INTRAVENOUS?
     Route: 042

REACTIONS (6)
  - Rash [None]
  - Tongue oedema [None]
  - Bronchospasm [None]
  - Lip oedema [None]
  - Respiratory tract oedema [None]
  - Hypotension [None]

NARRATIVE: CASE EVENT DATE: 20150423
